FAERS Safety Report 7530107-1 (Version None)
Quarter: 2011Q2

REPORT INFORMATION
  Report Type: 
  Country: None (occurrence: None)
  Receive Date: 20110527
  Receipt Date: 20110525
  Transmission Date: 20111010
  Serious: Yes (Death)
  Sender: FDA-Public Use
  Company Number: 2008-183584-NL

PATIENT
  Age: 27 Year
  Sex: Female
  Weight: 120.7 kg

DRUGS (1)
  1. NUVARING [Suspect]
     Indication: CONTRACEPTION
     Dosage: 1 DF;   ;VAG
     Route: 067
     Dates: start: 20060315, end: 20061001

REACTIONS (14)
  - POLLAKIURIA [None]
  - DEPRESSED LEVEL OF CONSCIOUSNESS [None]
  - DIZZINESS [None]
  - AGGRESSION [None]
  - OEDEMA PERIPHERAL [None]
  - CYSTITIS [None]
  - CARDIAC ARREST [None]
  - EPISTAXIS [None]
  - PULSE ABSENT [None]
  - PULMONARY EMBOLISM [None]
  - BURNING SENSATION [None]
  - ARTHRALGIA [None]
  - APNOEIC ATTACK [None]
  - PAIN IN EXTREMITY [None]
